FAERS Safety Report 9752646 (Version 1)
Quarter: 2013Q4

REPORT INFORMATION
  Report Type: Spontaneous
  Country: US (occurrence: None)
  Receive Date: 20131212
  Receipt Date: 20131212
  Transmission Date: 20140711
  Serious: No
  Sender: FDA-Public Use
  Company Number: None

PATIENT
  Age: 49 Year
  Sex: Male
  Weight: 113.4 kg

DRUGS (1)
  1. CREST PRO HEALTH CLINICAL MOUTHWASH [Suspect]
     Indication: DENTAL CARE
     Dosage: 0.1%?20 ML?30 SECONDS TWICE A DAY?ORAL MOUTH RINSE
     Dates: start: 20131130, end: 20131130

REACTIONS (4)
  - Middle insomnia [None]
  - Salivary gland pain [None]
  - Glossodynia [None]
  - Tongue blistering [None]
